FAERS Safety Report 10300611 (Version 1)
Quarter: 2014Q3

REPORT INFORMATION
  Report Type: Report from Study
  Country: GB (occurrence: GB)
  Receive Date: 20140714
  Receipt Date: 20140714
  Transmission Date: 20150326
  Serious: Yes (Death, Other)
  Sender: FDA-Public Use
  Company Number: GB-ROCHE-1383309

PATIENT

DRUGS (5)
  1. CETUXIMAB [Suspect]
     Active Substance: CETUXIMAB
     Indication: COLORECTAL CANCER METASTATIC
     Route: 042
  2. OXALIPLATIN. [Suspect]
     Active Substance: OXALIPLATIN
     Indication: COLORECTAL CANCER METASTATIC
     Route: 042
  3. FLUOROURACIL. [Suspect]
     Active Substance: FLUOROURACIL
     Indication: COLORECTAL CANCER METASTATIC
     Route: 040
  4. IRINOTECAN HYDROCHLORIDE. [Suspect]
     Active Substance: IRINOTECAN HYDROCHLORIDE
     Indication: COLORECTAL CANCER METASTATIC
     Route: 042
  5. CAPECITABINE [Suspect]
     Active Substance: CAPECITABINE
     Indication: COLORECTAL CANCER METASTATIC
     Route: 048

REACTIONS (46)
  - Rash [Unknown]
  - Tumour haemorrhage [Unknown]
  - Pain [Unknown]
  - Alanine aminotransferase increased [Unknown]
  - White blood cell count decreased [Unknown]
  - Decreased appetite [Unknown]
  - Pneumonia [Unknown]
  - Interstitial lung disease [Fatal]
  - Renal failure acute [Unknown]
  - Liver function test abnormal [Unknown]
  - Anaphylactic reaction [Unknown]
  - Febrile neutropenia [Unknown]
  - Lethargy [Unknown]
  - Stomatitis [Unknown]
  - Bronchopneumonia [Fatal]
  - Neutrophil count decreased [Unknown]
  - Neutropenia [Unknown]
  - Neuropathy peripheral [Unknown]
  - Hypomagnesaemia [Unknown]
  - Diarrhoea [Unknown]
  - Immune system disorder [Unknown]
  - Nausea [Unknown]
  - Embolism [Unknown]
  - Hypokalaemia [Unknown]
  - Abdominal pain [Unknown]
  - Confusional state [Unknown]
  - Alopecia [Unknown]
  - Visual impairment [Unknown]
  - Anaemia [Unknown]
  - Hypersensitivity [Unknown]
  - Chest pain [Unknown]
  - Obstruction gastric [Unknown]
  - Hyperglycaemia [Unknown]
  - Infection [Unknown]
  - Laryngospasm [Unknown]
  - Sepsis [Unknown]
  - Cardiac arrest [Fatal]
  - Pulmonary embolism [Fatal]
  - Blood glucose increased [Unknown]
  - Neutropenic sepsis [Unknown]
  - Chills [Unknown]
  - Cardiac failure [Fatal]
  - Vomiting [Unknown]
  - Vascular pain [Unknown]
  - Dehydration [Unknown]
  - Tinnitus [Unknown]
